FAERS Safety Report 6448562-7 (Version None)
Quarter: 2009Q4

REPORT INFORMATION
  Report Type: 
  Country: None (occurrence: None)
  Receive Date: 20091120
  Receipt Date: 20091110
  Transmission Date: 20100525
  Serious: Yes (Other)
  Sender: FDA-Public Use
  Company Number: US-AMGEN-QUU373883

PATIENT
  Sex: Female

DRUGS (2)
  1. ENBREL [Suspect]
     Indication: PSORIATIC ARTHROPATHY
     Dates: start: 20091019
  2. ENBREL [Suspect]
     Indication: PSORIASIS

REACTIONS (11)
  - ARTHRALGIA [None]
  - BACK PAIN [None]
  - COUGH [None]
  - FATIGUE [None]
  - HAEMORRHAGIC DIATHESIS [None]
  - HEART RATE INCREASED [None]
  - HYPOAESTHESIA [None]
  - INCREASED TENDENCY TO BRUISE [None]
  - MUSCULOSKELETAL PAIN [None]
  - PALLOR [None]
  - RESPIRATORY RATE INCREASED [None]
